FAERS Safety Report 21814655 (Version 1)
Quarter: 2023Q1

REPORT INFORMATION
  Report Type: Report from Study
  Country: US (occurrence: US)
  Receive Date: 20230104
  Receipt Date: 20230104
  Transmission Date: 20230418
  Serious: No
  Sender: FDA-Public Use
  Company Number: US-ABBVIE-4220827

PATIENT
  Sex: Female

DRUGS (1)
  1. RINVOQ [Suspect]
     Active Substance: UPADACITINIB
     Indication: Oral disorder
     Dosage: CESSATION DATE 2022; ONSET DATE OF HAIR LOSS/HAIR WAS BRITTLE AND FELL OUT WAS 2022
     Route: 048
     Dates: start: 202207

REACTIONS (2)
  - Trichorrhexis [Recovering/Resolving]
  - Alopecia [Recovering/Resolving]
